FAERS Safety Report 14402000 (Version 1)
Quarter: 2018Q1

REPORT INFORMATION
  Report Type: Spontaneous
  Country: GB (occurrence: US)
  Receive Date: 20180117
  Receipt Date: 20180117
  Transmission Date: 20180509
  Serious: No
  Sender: FDA-Public Use
  Company Number: GB-SAREPTA THERAPEUTICS, INC-SRP-000091-2017

PATIENT
  Sex: Male

DRUGS (2)
  1. EXONDYS 51 [Suspect]
     Active Substance: ETEPLIRSEN
     Indication: DUCHENNE MUSCULAR DYSTROPHY
     Dosage: 900 MG, WEEKLY
     Route: 042
     Dates: start: 201705, end: 20171010
  2. EXONDYS 51 [Suspect]
     Active Substance: ETEPLIRSEN
     Dosage: 900 MG, WEEKLY
     Route: 042
     Dates: start: 201705, end: 20171010

REACTIONS (5)
  - Headache [Recovered/Resolved]
  - Disorientation [Recovered/Resolved]
  - Fatigue [Recovered/Resolved]
  - Balance disorder [Recovered/Resolved]
  - Irritability [Recovered/Resolved]
